FAERS Safety Report 4525344-4 (Version None)
Quarter: 2004Q4

REPORT INFORMATION
  Report Type: 
  Country: None (occurrence: None)
  Receive Date: 20041213
  Receipt Date: 20041130
  Transmission Date: 20050328
  Serious: Yes (Other)
  Sender: FDA-Public Use
  Company Number: US-JNJFOC-20041200206

PATIENT
  Age: 30 Year
  Sex: Female
  Weight: 90.72 kg

DRUGS (1)
  1. ORTHO EVRA [Suspect]
     Indication: CONTRACEPTION
     Route: 062
     Dates: start: 20020201, end: 20041104

REACTIONS (5)
  - BENIGN INTRACRANIAL HYPERTENSION [None]
  - HEADACHE [None]
  - HYPERTENSION [None]
  - OPTIC NERVE DISORDER [None]
  - SWELLING [None]
